FAERS Safety Report 23576284 (Version 2)
Quarter: 2024Q1

REPORT INFORMATION
  Report Type: Spontaneous
  Country: US (occurrence: US)
  Receive Date: 20240228
  Receipt Date: 20240307
  Transmission Date: 20240410
  Serious: Yes (Other)
  Sender: FDA-Public Use
  Company Number: US-MYOVANT SCIENCES GMBH-2023MYSCI1100276

PATIENT
  Age: 61 Year
  Sex: Male

DRUGS (2)
  1. ORGOVYX [Suspect]
     Active Substance: RELUGOLIX
     Indication: Prostate cancer
     Dosage: 360 MILLIGRAM, ONE TIME DOSE
     Route: 048
     Dates: start: 20231028, end: 20231028
  2. ORGOVYX [Suspect]
     Active Substance: RELUGOLIX
     Dosage: 120 MILLIGRAM, QD
     Route: 048
     Dates: start: 20231029

REACTIONS (25)
  - Prostate cancer recurrent [Unknown]
  - Pain [Unknown]
  - Sleep disorder [Unknown]
  - Fat tissue increased [Unknown]
  - Bowel movement irregularity [Unknown]
  - Nausea [Unknown]
  - Hypotonia [Unknown]
  - Hot flush [Not Recovered/Not Resolved]
  - Constipation [Not Recovered/Not Resolved]
  - Fatigue [Not Recovered/Not Resolved]
  - Myalgia [Not Recovered/Not Resolved]
  - Arthralgia [Unknown]
  - Libido decreased [Unknown]
  - Asthenia [Unknown]
  - Hyperhidrosis [Recovered/Resolved]
  - Back disorder [Unknown]
  - Flatulence [Unknown]
  - Steatorrhoea [Unknown]
  - Pollakiuria [Unknown]
  - Melaena [Unknown]
  - Nasopharyngitis [Unknown]
  - Agitation [Unknown]
  - Anxiety [Unknown]
  - Epigastric discomfort [Unknown]
  - Prostatitis [Unknown]

NARRATIVE: CASE EVENT DATE: 20231104
